FAERS Safety Report 5753708-X (Version None)
Quarter: 2008Q2

REPORT INFORMATION
  Report Type: 
  Country: None (occurrence: None)
  Receive Date: 20080529
  Receipt Date: 20080521
  Transmission Date: 20081010
  Serious: No
  Sender: FDA-Public Use
  Company Number: 08H-163-0314322-00

PATIENT
  Sex: Male

DRUGS (1)
  1. HEPARIN SODIUM [Suspect]
     Indication: DRUG USE FOR UNKNOWN INDICATION
     Dosage: 9.4 CC/HR, CONTINUOUS, INTRAVENOUS
     Route: 042
     Dates: start: 20080519, end: 20080519

REACTIONS (2)
  - DEVICE MALFUNCTION [None]
  - INCORRECT DRUG ADMINISTRATION RATE [None]
